FAERS Safety Report 13584972 (Version 4)
Quarter: 2017Q2

REPORT INFORMATION
  Report Type: Report from Study
  Country: US (occurrence: IN)
  Receive Date: 20170526
  Receipt Date: 20170629
  Transmission Date: 20170830
  Serious: Yes (Hospitalization, Other)
  Sender: FDA-Public Use
  Company Number: US-SUNOVION-2017SUN002252

PATIENT
  Age: 64 Year
  Sex: Male
  Weight: 44 kg

DRUGS (3)
  1. INDACATEROL AND GLYCOPYRROLATE [Suspect]
     Active Substance: GLYCOPYRROLATE\INDACATEROL MALEATE
     Indication: CHRONIC OBSTRUCTIVE PULMONARY DISEASE
     Dosage: 1 DF (50 UG/110 UG), QD
     Route: 055
     Dates: start: 20170428
  2. METFORMIN [Concomitant]
     Active Substance: METFORMIN HYDROCHLORIDE
     Dosage: UNK
     Dates: start: 20170522
  3. SHELCAL [Concomitant]
     Dosage: UNK
     Dates: start: 20170522

REACTIONS (38)
  - Productive cough [Recovered/Resolved]
  - Pulmonary mass [Unknown]
  - Pneumonia [Recovered/Resolved]
  - Chest discomfort [Unknown]
  - Sputum discoloured [Recovered/Resolved]
  - Productive cough [Recovered/Resolved]
  - White blood cell count increased [Unknown]
  - Tuberculosis [Recovering/Resolving]
  - Hypersensitivity [Unknown]
  - Neutrophil count increased [Unknown]
  - Eosinophil count decreased [Unknown]
  - Lung hyperinflation [Recovered/Resolved]
  - Gastrooesophageal reflux disease [Unknown]
  - Dyspnoea [Recovered/Resolved]
  - Deep vein thrombosis [Unknown]
  - Chest pain [Recovered/Resolved]
  - Emphysema [Recovered/Resolved]
  - Blood albumin decreased [Unknown]
  - Blood sodium decreased [Unknown]
  - Dyspnoea [Recovered/Resolved]
  - Protein total decreased [Unknown]
  - Vomiting [Unknown]
  - Cough [Unknown]
  - Lymphocyte count decreased [Unknown]
  - Blood lactate dehydrogenase increased [Unknown]
  - Red cell distribution width increased [Unknown]
  - Pleural effusion [Recovered/Resolved]
  - Pleural effusion [Recovered/Resolved]
  - Hyperchlorhydria [Unknown]
  - Platelet count decreased [Unknown]
  - Blood iron decreased [Unknown]
  - Chronic obstructive pulmonary disease [Unknown]
  - Inflammation [Unknown]
  - Chest pain [Recovered/Resolved]
  - Bacterial infection [Unknown]
  - Pain [Unknown]
  - Decreased appetite [Unknown]
  - Blood pressure systolic increased [Unknown]

NARRATIVE: CASE EVENT DATE: 20170514
